FAERS Safety Report 7503832-6 (Version None)
Quarter: 2011Q2

REPORT INFORMATION
  Report Type: 
  Country: None (occurrence: None)
  Receive Date: 20110518
  Receipt Date: 20110518
  Transmission Date: 20111010
  Serious: Yes (Other)
  Sender: FDA-Public Use
  Company Number: FK201100931

PATIENT
  Age: 77 Year
  Sex: Male

DRUGS (2)
  1. CLADRIBINE [Suspect]
     Indication: HAIRY CELL LEUKAEMIA
     Dosage: 0.12 MG/KG, EVERY 5 DAYS
  2. PENTOSTATIN (PENTOSTATIN) (PENTOSTATIN) [Concomitant]

REACTIONS (6)
  - MEMORY IMPAIRMENT [None]
  - BRADYPHRENIA [None]
  - GERSTMANN'S SYNDROME [None]
  - SOMNOLENCE [None]
  - PROGRESSIVE MULTIFOCAL LEUKOENCEPHALOPATHY [None]
  - BLINDNESS CORTICAL [None]
